FAERS Safety Report 11215667 (Version 2)
Quarter: 2015Q2

REPORT INFORMATION
  Report Type: Other
  Country: IT (occurrence: IT)
  Receive Date: 20150624
  Receipt Date: 20150630
  Transmission Date: 20150821
  Serious: Yes (Hospitalization)
  Sender: FDA-Public Use
  Company Number: IT-MYLANLABS-2015M1020814

PATIENT

DRUGS (3)
  1. QUETIAPINA [Suspect]
     Active Substance: QUETIAPINE
     Indication: PRODUCT USED FOR UNKNOWN INDICATION
     Dosage: 40 DF TOTAL
     Route: 048
     Dates: start: 20150506
  2. MIRTAZAPINA [Suspect]
     Active Substance: MIRTAZAPINE
     Indication: PRODUCT USED FOR UNKNOWN INDICATION
     Dosage: 12 DF TOTAL
     Route: 048
     Dates: start: 20150506
  3. XANAX [Suspect]
     Active Substance: ALPRAZOLAM
     Indication: PRODUCT USED FOR UNKNOWN INDICATION
     Dosage: 46 DF TOTAL
     Route: 048
     Dates: start: 20150506, end: 20150506

REACTIONS (4)
  - Overdose [Unknown]
  - Drug abuse [Recovered/Resolved]
  - Intentional self-injury [Unknown]
  - Sopor [Recovered/Resolved]

NARRATIVE: CASE EVENT DATE: 20150506
